FAERS Safety Report 4852765-2 (Version None)
Quarter: 2005Q4

REPORT INFORMATION
  Report Type: 
  Country: None (occurrence: None)
  Receive Date: 20051125
  Receipt Date: 20050304
  Transmission Date: 20060501
  Serious: Yes (Life-Threatening, Other)
  Sender: FDA-Public Use
  Company Number: HQWYE876408MAR05

PATIENT
  Age: 33 Year
  Sex: Female
  Weight: 63.56 kg

DRUGS (6)
  1. ZOSYN [Suspect]
     Indication: APPENDICITIS
     Dosage: ONE DOSE AT 3.375 G, INTRAVENOUS
     Route: 042
     Dates: start: 20050208, end: 20050208
  2. VICODIN [Concomitant]
  3. LEVAQUIN [Concomitant]
  4. MORPHINE [Concomitant]
  5. ZANTAC [Concomitant]
  6. NOVOLIN R [Concomitant]

REACTIONS (2)
  - ANAPHYLACTIC REACTION [None]
  - RENAL FAILURE [None]
